FAERS Safety Report 8048396-6 (Version None)
Quarter: 2012Q1

REPORT INFORMATION
  Report Type: 
  Country: None (occurrence: None)
  Receive Date: 20120117
  Receipt Date: 20120110
  Transmission Date: 20120608
  Serious: No
  Sender: FDA-Public Use
  Company Number: US-PFIZER INC-2012007638

PATIENT
  Sex: Female

DRUGS (3)
  1. FLAGYL [Suspect]
     Indication: GASTROINTESTINAL DISORDER
     Dosage: UNK
     Route: 042
     Dates: start: 20111201, end: 20120101
  2. LEVAQUIN [Concomitant]
     Indication: GASTROINTESTINAL DISORDER
     Dosage: UNK
  3. METFORMIN [Concomitant]
     Indication: DIABETES MELLITUS
     Dosage: UNK

REACTIONS (2)
  - DIZZINESS [None]
  - LIMB DISCOMFORT [None]
